FAERS Safety Report 4701681-5 (Version None)
Quarter: 2005Q2

REPORT INFORMATION
  Report Type: 
  Country: None (occurrence: None)
  Receive Date: 20050627
  Receipt Date: 20050614
  Transmission Date: 20051028
  Serious: Yes (Death, Life-Threatening, Hospitalization)
  Sender: FDA-Public Use
  Company Number: 2005054596

PATIENT
  Age: 64 Year
  Sex: Male

DRUGS (1)
  1. BEXTRA [Suspect]
     Indication: ARTHRALGIA
     Dosage: 40 MG (40 MG, 1 IN 1D), ORAL
     Route: 048

REACTIONS (3)
  - GASTRIC HAEMORRHAGE [None]
  - PULMONARY CONGESTION [None]
  - TRANSFUSION REACTION [None]
